FAERS Safety Report 8962297 (Version 1)
Quarter: 2012Q4

REPORT INFORMATION
  Report Type: 
  Country: US (occurrence: None)
  Receive Date: 20121204
  Receipt Date: 20121204
  Transmission Date: 20130627
  Serious: Yes (Other)
  Sender: FDA-Public Use
  Company Number: 2012MA013164

PATIENT
  Age: 46 Year
  Sex: Female
  Weight: 72.58 kg

DRUGS (1)
  1. M-ZOLE 3 [Suspect]
     Route: 067
     Dates: start: 20121029, end: 20121031

REACTIONS (1)
  - Drug ineffective [None]
